FAERS Safety Report 6302285-3 (Version None)
Quarter: 2009Q3

REPORT INFORMATION
  Report Type: 
  Country: None (occurrence: None)
  Receive Date: 20090810
  Receipt Date: 20090727
  Transmission Date: 20100115
  Serious: Yes (Other)
  Sender: FDA-Public Use
  Company Number: GB-PFIZER INC-2009223722

PATIENT
  Age: 51 Year

DRUGS (4)
  1. CHAMPIX [Suspect]
     Indication: SMOKING CESSATION THERAPY
     Dosage: 1 MG, 2X/DAY
     Route: 048
     Dates: start: 20080129, end: 20080320
  2. BECLOMETHASONE DIPROPIONATE [Concomitant]
     Indication: CHRONIC OBSTRUCTIVE PULMONARY DISEASE
     Dosage: UNK
     Route: 055
     Dates: start: 20080101
  3. SERTRALINE [Concomitant]
     Dosage: 100 MG, UNK
     Route: 048
     Dates: start: 19970101
  4. SALMETEROL [Concomitant]
     Dosage: 25 MG, UNK
     Route: 055
     Dates: start: 20070101

REACTIONS (5)
  - DEPRESSED MOOD [None]
  - PSYCHOMOTOR HYPERACTIVITY [None]
  - SELF ESTEEM DECREASED [None]
  - SELF-INJURIOUS IDEATION [None]
  - SUICIDAL IDEATION [None]
